FAERS Safety Report 11919450 (Version 1)
Quarter: 2016Q1

REPORT INFORMATION
  Report Type: Spontaneous
  Country: US (occurrence: None)
  Receive Date: 20160114
  Receipt Date: 20160114
  Transmission Date: 20160526
  Serious: No
  Sender: FDA-Public Use
  Company Number: None

PATIENT
  Age: 48 Year
  Sex: Female
  Weight: 61.69 kg

DRUGS (7)
  1. ADDERALL [Concomitant]
     Active Substance: AMPHETAMINE ASPARTATE\AMPHETAMINE SULFATE\DEXTROAMPHETAMINE SACCHARATE\DEXTROAMPHETAMINE SULFATE
  2. PROPOFOL. [Suspect]
     Active Substance: PROPOFOL
     Indication: SEDATIVE THERAPY
     Dates: start: 20160112, end: 20160112
  3. WELLBUTRIN [Concomitant]
     Active Substance: BUPROPION HYDROCHLORIDE
  4. CLONAZEPAM. [Concomitant]
     Active Substance: CLONAZEPAM
  5. PROPOFOL. [Suspect]
     Active Substance: PROPOFOL
     Indication: ANAESTHESIA
     Dates: start: 20160112, end: 20160112
  6. DUAVEE [Concomitant]
     Active Substance: BAZEDOXIFENE ACETATE\ESTROGENS, CONJUGATED
  7. ACYCLOVIR. [Concomitant]
     Active Substance: ACYCLOVIR

REACTIONS (3)
  - Myalgia [None]
  - Pain [None]
  - Arthralgia [None]

NARRATIVE: CASE EVENT DATE: 20160112
